FAERS Safety Report 9644869 (Version 1)
Quarter: 2013Q4

REPORT INFORMATION
  Report Type: Spontaneous
  Country: MX (occurrence: MX)
  Receive Date: 20131025
  Receipt Date: 20131025
  Transmission Date: 20140711
  Serious: Yes (Disabling, Other)
  Sender: FDA-Public Use
  Company Number: PHHY2013MX120158

PATIENT
  Age: 86 Year
  Sex: Female

DRUGS (2)
  1. STALEVO [Suspect]
     Indication: PARKINSON^S DISEASE
     Dosage: 1.5 DF, UNK
     Route: 048
     Dates: start: 2011
  2. STALEVO [Suspect]
     Dosage: 0.5 DF, BID (HALF TABLET IN THE MORNING AND HALF TABLET AT AFTERNOON)
     Route: 048

REACTIONS (3)
  - Speech disorder [Recovering/Resolving]
  - Brain stem haemorrhage [Recovering/Resolving]
  - Wrong technique in drug usage process [Not Recovered/Not Resolved]
